FAERS Safety Report 5526350-3 (Version None)
Quarter: 2007Q4

REPORT INFORMATION
  Report Type: 
  Country: None (occurrence: None)
  Receive Date: 20071121
  Receipt Date: 20071121
  Transmission Date: 20080405
  Serious: No
  Sender: FDA-Public Use
  Company Number: None

PATIENT
  Age: 56 Year
  Sex: Male

DRUGS (1)
  1. DIPHENHYDRAMINE HCL [Suspect]
     Indication: HYPERSENSITIVITY
     Dosage: 25 MG ONCE
     Dates: start: 20071115, end: 20071116

REACTIONS (3)
  - BLISTER [None]
  - EYE SWELLING [None]
  - SKIN DISORDER [None]
